FAERS Safety Report 15130825 (Version 1)
Quarter: 2018Q3

REPORT INFORMATION
  Report Type: Report from Study
  Country: US (occurrence: US)
  Receive Date: 20180711
  Receipt Date: 20180711
  Transmission Date: 20181010
  Serious: Yes (Death, Hospitalization)
  Sender: FDA-Public Use
  Company Number: US-ACTELION-A-NJ2018-174382

PATIENT
  Age: 26 Year
  Sex: Female
  Weight: 65.31 kg

DRUGS (1)
  1. VELETRI [Suspect]
     Active Substance: EPOPROSTENOL
     Indication: PULMONARY HYPERTENSION
     Dosage: 7 NG/KG, PER MIN
     Route: 042
     Dates: start: 201806

REACTIONS (2)
  - Death [Fatal]
  - Dizziness [Unknown]

NARRATIVE: CASE EVENT DATE: 201806
